FAERS Safety Report 5845595-6 (Version None)
Quarter: 2008Q3

REPORT INFORMATION
  Report Type: 
  Country: None (occurrence: None)
  Receive Date: 20080814
  Receipt Date: 20080806
  Transmission Date: 20090109
  Serious: Yes (Hospitalization)
  Sender: FDA-Public Use
  Company Number: IT-ABBOTT-08P-083-0469260-00

PATIENT
  Age: 36 Year
  Sex: Female

DRUGS (2)
  1. HUMIRA [Suspect]
     Indication: RHEUMATOID ARTHRITIS
     Route: 058
  2. HUMIRA [Suspect]

REACTIONS (7)
  - AGITATION [None]
  - CONVULSION [None]
  - COUGH [None]
  - HALLUCINATION, VISUAL [None]
  - PYREXIA [None]
  - TREMOR [None]
  - VERTIGO [None]
